FAERS Safety Report 10443377 (Version 1)
Quarter: 2014Q3

REPORT INFORMATION
  Report Type: Spontaneous
  Country: US (occurrence: US)
  Receive Date: 20140910
  Receipt Date: 20140910
  Transmission Date: 20150326
  Serious: No
  Sender: FDA-Public Use
  Company Number: US-009507513-1409USA003914

PATIENT
  Age: 16 Year
  Sex: Female

DRUGS (1)
  1. IMPLANON [Suspect]
     Active Substance: ETONOGESTREL
     Indication: CONTRACEPTION
     Dosage: 1/ 3 YEARS
     Route: 059
     Dates: start: 201204

REACTIONS (4)
  - Haemorrhage [Unknown]
  - Menorrhagia [Unknown]
  - Malaise [Unknown]
  - Back pain [Unknown]

NARRATIVE: CASE EVENT DATE: 201204
